FAERS Safety Report 10879022 (Version 1)
Quarter: 2015Q1

REPORT INFORMATION
  Report Type: Spontaneous
  Country: US (occurrence: None)
  Receive Date: 20150225
  Receipt Date: 20150225
  Transmission Date: 20150721
  Serious: Yes (Other)
  Sender: FDA-Public Use
  Company Number: 2015NUESA00441

PATIENT
  Age: 71 Year
  Sex: Female
  Weight: 86.2 kg

DRUGS (7)
  1. NUEDEXTA [Suspect]
     Active Substance: DEXTROMETHORPHAN HYDROBROMIDE\QUINIDINE SULFATE
     Indication: AFFECT LABILITY
     Dosage: 1 CAP, BID, ORAL
     Route: 048
     Dates: start: 20150123, end: 20150209
  2. POTASSIUM (POTASSIUM CHLORIDE) [Concomitant]
  3. CHLORTHALIDONE. [Concomitant]
     Active Substance: CHLORTHALIDONE
  4. OMEGA 3 (FISH OIL) [Concomitant]
     Active Substance: OMEGA-3 FATTY ACIDS
  5. VITAMIN D (COLECALCIFEROL) [Concomitant]
  6. VITAMIN A (RETINOL PALMITATE) [Concomitant]
  7. VITAMIN C [Concomitant]
     Active Substance: ASCORBIC ACID

REACTIONS (11)
  - Diplopia [None]
  - Arthralgia [None]
  - Agitation [None]
  - Drug dependence [None]
  - Tachycardia [None]
  - Arrhythmia [None]
  - Insomnia [None]
  - Tremor [None]
  - Muscle spasms [None]
  - Anxiety [None]
  - Nasal congestion [None]

NARRATIVE: CASE EVENT DATE: 20150212
